FAERS Safety Report 6213128-0 (Version None)
Quarter: 2009Q2

REPORT INFORMATION
  Report Type: 
  Country: None (occurrence: None)
  Receive Date: 20090603
  Receipt Date: 20090527
  Transmission Date: 20091009
  Serious: Yes (Hospitalization, Other)
  Sender: FDA-Public Use
  Company Number: US-BAXTER-2009BH007867

PATIENT
  Age: 63 Year
  Sex: Male

DRUGS (6)
  1. LACTATED RINGER'S [Suspect]
     Indication: FLUID REPLACEMENT
     Route: 042
     Dates: start: 20090429, end: 20090429
  2. 0.9% SODIUM CHLORIDE IRRIGATION IN PLASTIC CONTAINER [Suspect]
     Indication: BLADDER IRRIGATION
     Route: 043
     Dates: start: 20090429, end: 20090429
  3. LISINOPRIL [Concomitant]
     Indication: HYPERTENSION
     Route: 048
  4. AMIODARONE HCL [Concomitant]
     Indication: DRUG USE FOR UNKNOWN INDICATION
     Route: 048
  5. LIPITOR [Concomitant]
     Indication: HYPERLIPIDAEMIA
     Route: 048
  6. CLONIDINE [Concomitant]
     Indication: HYPERTENSION
     Route: 065

REACTIONS (5)
  - ABDOMINAL DISTENSION [None]
  - ABDOMINAL PAIN [None]
  - OLIGURIA [None]
  - RENAL FAILURE ACUTE [None]
  - RENAL TUBULAR NECROSIS [None]
